FAERS Safety Report 9128067 (Version 2)
Quarter: 2013Q2

REPORT INFORMATION
  Report Type: Report from Study
  Country: DE (occurrence: DE)
  Receive Date: 20130228
  Receipt Date: 20130415
  Transmission Date: 20140414
  Serious: Yes (Other)
  Sender: FDA-Public Use
  Company Number: DE-JNJFOC-20130216601

PATIENT
  Age: 69 Year
  Sex: Female
  Weight: 105 kg

DRUGS (8)
  1. TAPENTADOL [Suspect]
     Indication: TUMOUR PAIN
     Route: 065
     Dates: start: 20110124
  2. NORSPAN [Concomitant]
     Indication: TUMOUR PAIN
     Route: 065
  3. MTX [Concomitant]
     Indication: BACK PAIN
     Route: 065
  4. ANALGESICS [Concomitant]
     Indication: TUMOUR PAIN
     Route: 065
  5. MOVICOL [Concomitant]
     Indication: CONSTIPATION
     Dosage: 1-2 DF PER DAY
     Route: 065
  6. L-THYROXIN [Concomitant]
     Indication: HYPOTHYROIDISM
     Route: 065
  7. CALCIMAGON D3 [Concomitant]
     Indication: OSTEOPOROSIS
     Route: 065
     Dates: start: 2010
  8. BLOPRESS [Concomitant]
     Indication: HYPERTENSION
     Route: 065

REACTIONS (1)
  - Breast cancer [Recovering/Resolving]
